FAERS Safety Report 18618346 (Version 1)
Quarter: 2020Q4

REPORT INFORMATION
  Report Type: Spontaneous
  Country: PL (occurrence: PL)
  Receive Date: 20201215
  Receipt Date: 20201215
  Transmission Date: 20210114
  Serious: Yes (Other)
  Sender: FDA-Public Use
  Company Number: PL-AMGEN-POLSP2020201204

PATIENT
  Age: 52 Year
  Sex: Male

DRUGS (4)
  1. VECTIBIX [Suspect]
     Active Substance: PANITUMUMAB
     Indication: ADENOCARCINOMA METASTATIC
     Dosage: UNK UNK, CYCLICAL
     Route: 065
     Dates: start: 20200423
  2. 5 FU [Concomitant]
     Active Substance: FLUOROURACIL
     Indication: ADENOCARCINOMA METASTATIC
     Dosage: UNK UNK, CYCLICAL
     Dates: start: 20200423
  3. OXALIPLATIN. [Concomitant]
     Active Substance: OXALIPLATIN
     Indication: ADENOCARCINOMA METASTATIC
     Dosage: UNK UNK, CYCLICAL
     Dates: start: 20200423
  4. FOLINIC ACID [Concomitant]
     Active Substance: LEUCOVORIN
     Indication: ADENOCARCINOMA METASTATIC
     Dosage: UNK UNK, CYCLICAL
     Dates: start: 20200423

REACTIONS (3)
  - Therapy partial responder [Unknown]
  - Neuropathy peripheral [Unknown]
  - Dermatitis acneiform [Unknown]

NARRATIVE: CASE EVENT DATE: 2020
